FAERS Safety Report 6927890-2 (Version None)
Quarter: 2010Q3

REPORT INFORMATION
  Report Type: 
  Country: None (occurrence: None)
  Receive Date: 20100816
  Receipt Date: 20100816
  Transmission Date: 20110219
  Serious: Yes (Life-Threatening, Disabling)
  Sender: FDA-Public Use
  Company Number: None

PATIENT
  Sex: Male
  Weight: 90.7194 kg

DRUGS (1)
  1. LANTUS [Suspect]
     Indication: DIABETES MELLITUS
     Dosage: ONCE DAILY IV
     Route: 042

REACTIONS (5)
  - BLOOD GLUCOSE DECREASED [None]
  - HYPERHIDROSIS [None]
  - PRODUCT FORMULATION ISSUE [None]
  - UNRESPONSIVE TO STIMULI [None]
  - WRONG DRUG ADMINISTERED [None]
